FAERS Safety Report 9625439 (Version 1)
Quarter: 2013Q4

REPORT INFORMATION
  Report Type: Report from Study
  Country: CA (occurrence: CA)
  Receive Date: 20131016
  Receipt Date: 20131016
  Transmission Date: 20140711
  Serious: Yes (Other)
  Sender: FDA-Public Use
  Company Number: CA-JNJFOC-20131006998

PATIENT
  Age: 53 Year
  Sex: Male
  Weight: 62.2 kg

DRUGS (1)
  1. REMICADE [Suspect]
     Indication: CROHN^S DISEASE
     Dosage: 8TH INFUSION
     Route: 042

REACTIONS (1)
  - Intestinal resection [Recovering/Resolving]
